FAERS Safety Report 17399913 (Version 1)
Quarter: 2020Q1

REPORT INFORMATION
  Report Type: Spontaneous
  Country: FI (occurrence: FI)
  Receive Date: 20200211
  Receipt Date: 20200211
  Transmission Date: 20200409
  Serious: Yes (Other)
  Sender: FDA-Public Use
  Company Number: FI-TEVA-2020-FI-1184151

PATIENT
  Sex: Female

DRUGS (2)
  1. KEFALEX [Suspect]
     Active Substance: CEPHALEXIN
     Indication: PNEUMONIA
     Dosage: 2250 MILLIGRAM DAILY;
     Dates: start: 20200112
  2. CIPRALEX [Interacting]
     Active Substance: ESCITALOPRAM OXALATE
     Dosage: 10 MILLIGRAM DAILY;
     Dates: end: 20200111

REACTIONS (4)
  - Heart rate increased [Unknown]
  - Drug interaction [Unknown]
  - Atrial fibrillation [Unknown]
  - Atrial flutter [Unknown]

NARRATIVE: CASE EVENT DATE: 20200113
